FAERS Safety Report 16790056 (Version 2)
Quarter: 2024Q4

REPORT INFORMATION
  Report Type: Spontaneous
  Country: DE (occurrence: DE)
  Receive Date: 20190910
  Receipt Date: 20241003
  Transmission Date: 20250114
  Serious: Yes (Congenital Anomaly, Other)
  Sender: TORRENT
  Company Number: None

PATIENT
  Age: 1 Day
  Sex: Male
  Weight: 2 kg

DRUGS (2)
  1. VALSARTAN [Suspect]
     Active Substance: VALSARTAN
     Indication: Product used for unknown indication
     Dosage: MOTHER DOSE: 80 [MG/D] 09-FEB-2018 TO 26-OCT-2018 FOR 259 DAYS.
     Route: 064
  2. METHYLDOPA [Concomitant]
     Active Substance: METHYLDOPA
     Indication: Product used for unknown indication
     Dosage: MOTHER DOSE: 1000 [MG/D] FROM 27-OCT-2018 TO 29-OCT-2018 FOR 3 DAYS.
     Route: 064

REACTIONS (11)
  - Pulmonary hypoplasia [Recovered/Resolved]
  - Patent ductus arteriosus [Unknown]
  - Renal failure [Not Recovered/Not Resolved]
  - Microcephaly [Unknown]
  - Renal dysplasia [Not Recovered/Not Resolved]
  - Small for dates baby [Recovered/Resolved]
  - Joint contracture [Recovering/Resolving]
  - Potter^s syndrome [Not Recovered/Not Resolved]
  - Foetal exposure during pregnancy [Unknown]
  - Atrial septal defect [Unknown]
  - Respiratory disorder neonatal [Recovered/Resolved]

NARRATIVE: CASE EVENT DATE: 20181029
